FAERS Safety Report 23963743 (Version 1)
Quarter: 2024Q2

REPORT INFORMATION
  Report Type: Spontaneous
  Country: US (occurrence: US)
  Receive Date: 20240611
  Receipt Date: 20240611
  Transmission Date: 20240716
  Serious: No
  Sender: FDA-Public Use
  Company Number: US-RIGEL PHARMACEUTICALS, INC.- 2023FOS000461

PATIENT
  Sex: Male
  Weight: 95.238 kg

DRUGS (1)
  1. TAVALISSE [Suspect]
     Active Substance: FOSTAMATINIB
     Indication: Haemorrhagic disorder
     Dosage: 150 MILLIGRAM, BID
     Route: 048
     Dates: start: 20211209

REACTIONS (1)
  - Therapeutic response unexpected [Not Recovered/Not Resolved]
